FAERS Safety Report 9728384 (Version 2)
Quarter: 2013Q4

REPORT INFORMATION
  Report Type: Report from Study
  Country: CA (occurrence: CA)
  Receive Date: 20131204
  Receipt Date: 20131212
  Transmission Date: 20140711
  Serious: Yes (Other)
  Sender: FDA-Public Use
  Company Number: CA-JNJFOC-20131118004

PATIENT
  Sex: Female
  Weight: 141.52 kg

DRUGS (4)
  1. REMICADE [Suspect]
     Indication: SARCOIDOSIS
     Route: 042
     Dates: start: 201212, end: 2013
  2. REMICADE [Suspect]
     Indication: SARCOIDOSIS
     Route: 042
     Dates: start: 2013
  3. REMICADE [Suspect]
     Indication: SARCOIDOSIS
     Route: 042
     Dates: start: 2013, end: 2013
  4. CORTICOSTEROIDS [Concomitant]
     Route: 065

REACTIONS (4)
  - Cranial nerve injury [Recovering/Resolving]
  - Dysphagia [Recovering/Resolving]
  - Off label use [Unknown]
  - Drug ineffective [Recovering/Resolving]
